FAERS Safety Report 4790570-6 (Version None)
Quarter: 2005Q4

REPORT INFORMATION
  Report Type: 
  Country: None (occurrence: None)
  Receive Date: 20051005
  Receipt Date: 20050926
  Transmission Date: 20060501
  Serious: Yes (Death, Hospitalization)
  Sender: FDA-Public Use
  Company Number: 2005PV002440

PATIENT
  Age: 54 Year
  Sex: Male
  Weight: 103.5108 kg

DRUGS (11)
  1. BYETTA [Suspect]
     Indication: DIABETES MELLITUS NON-INSULIN-DEPENDENT
     Dosage: 5 MCG;BID;SC
     Route: 058
     Dates: start: 20050801, end: 20050801
  2. BYETTA [Suspect]
     Indication: DIABETES MELLITUS NON-INSULIN-DEPENDENT
     Dosage: 5 MCG;BID;SC
     Route: 058
     Dates: start: 20050812, end: 20050801
  3. ACOTS [Concomitant]
  4. PLENDIL [Concomitant]
  5. HYZAAR [Concomitant]
  6. CLUCOVANCE [Concomitant]
  7. ECOTRIN [Concomitant]
  8. VITAMIN E [Concomitant]
  9. LANTUS [Concomitant]
  10. MULTI-VITAMINS [Concomitant]
  11. ASCORBIC ACID [Concomitant]

REACTIONS (12)
  - ACUTE RESPIRATORY FAILURE [None]
  - CARDIAC ARREST [None]
  - DEEP VEIN THROMBOSIS [None]
  - GASTRITIS [None]
  - GASTROINTESTINAL HAEMORRHAGE [None]
  - MULTI-ORGAN FAILURE [None]
  - PNEUMONIA PNEUMOCOCCAL [None]
  - PNEUMOPERITONEUM [None]
  - PROTHROMBIN TIME PROLONGED [None]
  - RENAL FAILURE ACUTE [None]
  - VENTRICULAR DYSFUNCTION [None]
  - VENTRICULAR HYPERTROPHY [None]
